FAERS Safety Report 8327063-5 (Version None)
Quarter: 2012Q2

REPORT INFORMATION
  Report Type: 
  Country: None (occurrence: None)
  Receive Date: 20120501
  Receipt Date: 20111227
  Transmission Date: 20120825
  Serious: Yes (Hospitalization)
  Sender: FDA-Public Use
  Company Number: US-SANOFI-AVENTIS-2011SA085167

PATIENT
  Age: 50 Year
  Sex: Female
  Weight: 73.42 kg

DRUGS (6)
  1. SIMVASTATIN [Concomitant]
  2. APIDRA [Suspect]
     Dosage: VIA CONTINUOUS PUMP
     Route: 058
  3. VITAMINS NOS [Concomitant]
  4. ZOLOFT [Concomitant]
  5. ZYRTEC [Concomitant]
  6. SYNTHROID [Concomitant]
     Indication: HYPOTHYROIDISM

REACTIONS (7)
  - NAUSEA [None]
  - THIRST [None]
  - CONFUSIONAL STATE [None]
  - PRODUCT QUALITY ISSUE [None]
  - HYPERGLYCAEMIA [None]
  - DISTURBANCE IN ATTENTION [None]
  - POLLAKIURIA [None]
